FAERS Safety Report 11640773 (Version 1)
Quarter: 2015Q4

REPORT INFORMATION
  Report Type: Spontaneous
  Country: US (occurrence: US)
  Receive Date: 20151019
  Receipt Date: 20151019
  Transmission Date: 20160304
  Serious: No
  Sender: FDA-Public Use
  Company Number: US-MISSION PHARMACAL COMPANY-1043100

PATIENT
  Age: 34 Year
  Sex: Female

DRUGS (2)
  1. UROCIT-K [Concomitant]
     Active Substance: POTASSIUM CITRATE
     Route: 048
  2. THIOLA [Suspect]
     Active Substance: TIOPRONIN
     Indication: CYSTINURIA
     Route: 048
     Dates: start: 20150605, end: 20150629

REACTIONS (3)
  - Pyrexia [Recovered/Resolved]
  - Rash generalised [Not Recovered/Not Resolved]
  - Diarrhoea [Recovered/Resolved]

NARRATIVE: CASE EVENT DATE: 20150622
